FAERS Safety Report 7264739-5 (Version None)
Quarter: 2011Q1

REPORT INFORMATION
  Report Type: 
  Country: None (occurrence: None)
  Receive Date: 20110131
  Receipt Date: 20110120
  Transmission Date: 20110831
  Serious: Yes (Other)
  Sender: FDA-Public Use
  Company Number: ES-SANOFI-AVENTIS-2011SA003865

PATIENT
  Age: 71 Year
  Sex: Female

DRUGS (7)
  1. DIPYRONE TAB [Suspect]
     Indication: PAIN
     Dosage: RECIBIO 2G/8H IV DEL 15 AL 17/10/10 Y 575 MG/DIA VO DEL 18 AL 20/10/10
     Route: 048
     Dates: start: 20101018, end: 20101020
  2. VANCOMYCIN [Suspect]
     Route: 042
     Dates: start: 20101015, end: 20101018
  3. PRIMPERAN TAB [Suspect]
     Indication: NAUSEA
     Route: 042
     Dates: start: 20101015, end: 20101018
  4. DIPYRONE TAB [Suspect]
     Route: 042
     Dates: start: 20101015, end: 20101017
  5. CLEXANE SYRINGES [Suspect]
     Indication: PROPHYLAXIS
     Route: 058
     Dates: start: 20101015, end: 20101018
  6. TRAMADOL HCL [Suspect]
     Indication: PAIN
     Route: 042
     Dates: start: 20101015, end: 20101018
  7. DEXKETOPROFEN [Suspect]
     Indication: PAIN
     Route: 042
     Dates: start: 20101015, end: 20101018

REACTIONS (1)
  - ACUTE GENERALISED EXANTHEMATOUS PUSTULOSIS [None]
